FAERS Safety Report 4604616-9 (Version None)
Quarter: 2005Q2

REPORT INFORMATION
  Report Type: 
  Country: None (occurrence: None)
  Receive Date: 20050224
  Receipt Date: 20041110
  Transmission Date: 20051028
  Serious: No
  Sender: FDA-Public Use
  Company Number: SU-2004-002829

PATIENT
  Age: 63 Year
  Sex: Female

DRUGS (1)
  1. BENICAR [Suspect]
     Indication: HYPERTENSION
     Dosage: 10 MG QD PO
     Route: 048
     Dates: start: 20030101, end: 20040101

REACTIONS (4)
  - ALOPECIA [None]
  - BURNING SENSATION [None]
  - HEADACHE [None]
  - HYPERSENSITIVITY [None]
